FAERS Safety Report 15196804 (Version 1)
Quarter: 2018Q3

REPORT INFORMATION
  Report Type: Spontaneous
  Country: US (occurrence: US)
  Receive Date: 20180725
  Receipt Date: 20180725
  Transmission Date: 20181010
  Serious: No
  Sender: FDA-Public Use
  Company Number: US-009507513-1611USA013721

PATIENT
  Age: 24 Year
  Sex: Female

DRUGS (4)
  1. EMTRICITABINE (+) TENOFOVIR DISOPROXIL FUMARATE [Suspect]
     Active Substance: EMTRICITABINE\TENOFOVIR DISOPROXIL
     Dosage: TOTAL DAILY DOSE: 400, COURSE NUMBER: 1
     Route: 048
     Dates: start: 2014
  2. ISENTRESS [Suspect]
     Active Substance: RALTEGRAVIR POTASSIUM
     Dosage: TOTAL DAILY DOSE: 400, COURSE NUMBER: 1
     Route: 048
     Dates: start: 2014
  3. RITONAVIR. [Suspect]
     Active Substance: RITONAVIR
     Dosage: TOTAL DAILY DOSE: 400, COURSE NUMBER: 1
     Route: 048
     Dates: start: 2014
  4. DARUNAVIR [Suspect]
     Active Substance: DARUNAVIR
     Dosage: TOTAL DAILY DOSE: 400, COURSE NUMBER: 1
     Route: 048
     Dates: start: 2014

REACTIONS (2)
  - Maternal exposure during pregnancy [Recovered/Resolved]
  - No adverse event [Unknown]
